FAERS Safety Report 21023736 (Version 1)
Quarter: 2022Q3

REPORT INFORMATION
  Report Type: Spontaneous
  Country: PT (occurrence: PT)
  Receive Date: 20220629
  Receipt Date: 20220629
  Transmission Date: 20221026
  Serious: Yes (Other)
  Sender: FDA-Public Use
  Company Number: PT-NOVARTISPH-NVSC2022PT147045

PATIENT
  Sex: Female

DRUGS (4)
  1. RIBOCICLIB [Suspect]
     Active Substance: RIBOCICLIB
     Indication: Product used for unknown indication
     Dosage: 600 MG, QD (FOR 21 DAYS EVERY 28 DAYS)
     Route: 048
     Dates: start: 20200904
  2. GOSERELIN ACETATE [Concomitant]
     Active Substance: GOSERELIN ACETATE
     Indication: Product used for unknown indication
     Dosage: 3.6 MG (EVERY 28 DAYS)
     Route: 065
     Dates: start: 20200904
  3. LETROZOLE [Concomitant]
     Active Substance: LETROZOLE
     Indication: Product used for unknown indication
     Dosage: 2.5 MG, QD
     Route: 048
     Dates: start: 20200904
  4. DEXAMETHASONE [Concomitant]
     Active Substance: DEXAMETHASONE
     Indication: Product used for unknown indication
     Dosage: UNK (4+4 MG, DAY)
     Route: 048

REACTIONS (7)
  - Carcinoembryonic antigen increased [Unknown]
  - Neutropenia [Unknown]
  - Central nervous system lesion [Unknown]
  - Cushingoid [Unknown]
  - Generalised oedema [Unknown]
  - Headache [Unknown]
  - Fatigue [Unknown]
